FAERS Safety Report 15297851 (Version 1)
Quarter: 2018Q3

REPORT INFORMATION
  Report Type: Spontaneous
  Country: JP (occurrence: JP)
  Receive Date: 20180820
  Receipt Date: 20180820
  Transmission Date: 20181010
  Serious: Yes (Death, Other)
  Sender: FDA-Public Use
  Company Number: JP-009507513-1805JPN002389J

PATIENT
  Age: 73 Year
  Sex: Female

DRUGS (3)
  1. HUMULIN R [Concomitant]
     Active Substance: INSULIN HUMAN
     Indication: BLOOD GLUCOSE DECREASED
     Dosage: 0.05 ML, UNK
     Route: 051
     Dates: end: 20180413
  2. CUBICIN [Suspect]
     Active Substance: DAPTOMYCIN
     Indication: STAPHYLOCOCCAL SEPSIS
     Dosage: 8.2 MG/KG, QD
     Route: 041
     Dates: start: 20180413, end: 20180413
  3. MEROPENEM. [Concomitant]
     Active Substance: MEROPENEM
     Indication: STAPHYLOCOCCAL SEPSIS
     Dosage: 2 G, QD
     Route: 041
     Dates: start: 20180413, end: 20180413

REACTIONS (2)
  - Overdose [Unknown]
  - Staphylococcal sepsis [Fatal]

NARRATIVE: CASE EVENT DATE: 20180413
